FAERS Safety Report 9156323 (Version 3)
Quarter: 2013Q2

REPORT INFORMATION
  Report Type: Spontaneous
  Country: BR (occurrence: BR)
  Receive Date: 20130312
  Receipt Date: 20130416
  Transmission Date: 20140414
  Serious: Yes (Other)
  Sender: FDA-Public Use
  Company Number: BR-AMGEN-BRASP2011057285

PATIENT
  Age: 59 Year
  Sex: Female
  Weight: 64 kg

DRUGS (20)
  1. ADDERA D3 [Concomitant]
     Dosage: UNK
  2. GLAUCOTRAT [Concomitant]
     Dosage: UNK
  3. CALCIUM CARBONATE [Concomitant]
     Dosage: UNK
  4. VITAMIN D3 [Concomitant]
     Dosage: UNK
  5. ENBREL [Suspect]
     Indication: RHEUMATOID ARTHRITIS
     Dosage: 50 MG, WEEKLY
     Route: 058
     Dates: start: 201103
  6. ENBREL [Suspect]
     Dosage: 50 MG, WEEKLY
     Route: 058
     Dates: start: 20111030
  7. ENBREL [Suspect]
     Dosage: 50 MG, WEEKLY
     Dates: start: 201201, end: 201206
  8. ENBREL [Suspect]
     Dosage: 50 MG, ONCE WEEKLY
     Route: 058
     Dates: start: 20120228
  9. ENBREL [Suspect]
     Dosage: UNK
     Dates: start: 201208
  10. ENBREL [Suspect]
     Dosage: UNK
  11. METHOTREXATE [Concomitant]
     Indication: RHEUMATOID ARTHRITIS
     Dosage: 10 MG, WEEKLY
  12. FOLIC ACID [Concomitant]
     Indication: RHEUMATOID ARTHRITIS
     Dosage: 5 MG, 2X/WEEK
  13. PREDSIM [Concomitant]
     Indication: RHEUMATOID ARTHRITIS
     Dosage: 5 MG DAILY (2 TABLETS)
  14. PREDSIM [Concomitant]
     Dosage: UNK, 5 TABLETS
  15. OMEPRAZOLE [Concomitant]
     Indication: GASTRITIS
     Dosage: 40 MG, 1X/DAY
  16. NATRILIX-SR [Concomitant]
     Indication: HYPERTENSION
     Dosage: ONE TABLET, ONCE DAILY
  17. LOSARTAN [Concomitant]
     Indication: HYPERTENSION
     Dosage: 50 MG, 1X/DAY
  18. ATENOLOL [Concomitant]
     Indication: CARDIAC DISORDER
     Dosage: UNK
  19. OSCAL D [Concomitant]
     Indication: RHEUMATOID ARTHRITIS
     Dosage: TWO TABLETS DAILY
  20. SIMVASTATIN [Concomitant]
     Indication: BLOOD CHOLESTEROL INCREASED
     Dosage: 20 MG, 1X/DAY

REACTIONS (9)
  - Limb prosthesis user [Unknown]
  - Cataract [Unknown]
  - Wrong technique in drug usage process [Unknown]
  - Rheumatoid arthritis [Unknown]
  - Pain [Unknown]
  - Injection site reaction [Unknown]
  - Injection site pain [Recovering/Resolving]
  - Injection site erythema [Unknown]
  - Injection site pruritus [Recovering/Resolving]
